FAERS Safety Report 15979374 (Version 2)
Quarter: 2019Q1

REPORT INFORMATION
  Report Type: Spontaneous
  Country: US (occurrence: US)
  Receive Date: 20190219
  Receipt Date: 20190314
  Transmission Date: 20190418
  Serious: Yes (Other)
  Sender: FDA-Public Use
  Company Number: US-ASTELLAS-2019US004914

PATIENT
  Age: 69 Year
  Sex: Female

DRUGS (1)
  1. MYRBETRIQ [Suspect]
     Active Substance: MIRABEGRON
     Indication: PRODUCT USED FOR UNKNOWN INDICATION
     Route: 065
     Dates: start: 20190202, end: 20190205

REACTIONS (3)
  - Oral pruritus [Unknown]
  - Angina bullosa haemorrhagica [Unknown]
  - Dry mouth [Unknown]

NARRATIVE: CASE EVENT DATE: 20190205
